FAERS Safety Report 6040133-X (Version None)
Quarter: 2009Q1

REPORT INFORMATION
  Report Type: 
  Country: None (occurrence: None)
  Receive Date: 20090116
  Receipt Date: 20071219
  Transmission Date: 20090719
  Serious: No
  Sender: FDA-Public Use
  Company Number: US-BRISTOL-MYERS SQUIBB COMPANY-14020465

PATIENT
  Sex: Male

DRUGS (1)
  1. ABILIFY [Suspect]
     Dosage: DRUG DOSE REDUCED TO 1/2TABLET DAILY
     Route: 048

REACTIONS (5)
  - DIZZINESS [None]
  - DRY MOUTH [None]
  - ENURESIS [None]
  - HEADACHE [None]
  - OCULAR HYPERAEMIA [None]
